FAERS Safety Report 12345548 (Version 1)
Quarter: 2016Q2

REPORT INFORMATION
  Report Type: Spontaneous
  Country: NL (occurrence: NL)
  Receive Date: 20160509
  Receipt Date: 20160509
  Transmission Date: 20160815
  Serious: Yes (Hospitalization, Other)
  Sender: FDA-Public Use
  Company Number: NL-ROCHE-1748115

PATIENT
  Age: 59 Year
  Sex: Female

DRUGS (2)
  1. FLUDARABINE [Suspect]
     Active Substance: FLUDARABINE PHOSPHATE
     Indication: WALDENSTROM^S MACROGLOBULINAEMIA
     Route: 065
  2. RITUXIMAB [Suspect]
     Active Substance: RITUXIMAB
     Indication: WALDENSTROM^S MACROGLOBULINAEMIA
     Route: 065

REACTIONS (10)
  - Myelodysplastic syndrome [Unknown]
  - Polyneuropathy [Unknown]
  - Drug ineffective [Unknown]
  - Immune system disorder [Unknown]
  - Acute myeloid leukaemia [Unknown]
  - Waldenstrom^s macroglobulinaemia [Unknown]
  - Fatigue [Unknown]
  - Motor dysfunction [Unknown]
  - Dyspnoea [Unknown]
  - Pain [Unknown]
